FAERS Safety Report 5583548-6 (Version None)
Quarter: 2007Q4

REPORT INFORMATION
  Report Type: 
  Country: None (occurrence: None)
  Receive Date: 20071130
  Receipt Date: 20061109
  Transmission Date: 20080405
  Serious: Yes (Disabling)
  Sender: FDA-Public Use
  Company Number: WAES 0611USA03475

PATIENT
  Age: 52 Year
  Sex: Female

DRUGS (2)
  1. FOSAMAX [Suspect]
     Dosage: 70 MG/WKY/PO
     Route: 048
     Dates: end: 20061101
  2. ACTONEL [Concomitant]

REACTIONS (1)
  - OSTEONECROSIS [None]
